FAERS Safety Report 16642114 (Version 1)
Quarter: 2019Q3

REPORT INFORMATION
  Report Type: Spontaneous
  Country: US (occurrence: US)
  Receive Date: 20190727
  Receipt Date: 20190727
  Transmission Date: 20191004
  Serious: Yes (Hospitalization)
  Sender: FDA-Public Use
  Company Number: None

PATIENT
  Age: 79 Year
  Sex: Female
  Weight: 70.9 kg

DRUGS (12)
  1. FOLIC ACID 1 MG [Concomitant]
  2. NITROFURANTOIN. [Suspect]
     Active Substance: NITROFURANTOIN
     Indication: PROPHYLAXIS URINARY TRACT INFECTION
     Route: 048
     Dates: start: 20190724, end: 20190724
  3. CA-VITAMIN D 500-200 [Concomitant]
  4. FLOMAX 0.4MG [Concomitant]
  5. DELTASONE 5MG [Concomitant]
  6. K-DUR, KLOR-CON 20MEQ [Concomitant]
  7. MAXZIDE 75-50MG [Concomitant]
  8. VITAMIN D3 1000 UNITS [Concomitant]
  9. DAILY-VITE TABLET [Concomitant]
  10. KLONIPIN 1 MG [Concomitant]
  11. METHOTREXATE 2.5MG [Concomitant]
     Active Substance: METHOTREXATE
  12. CRANBERRY CONCENTRATE ORAL [Concomitant]

REACTIONS (3)
  - Drug hypersensitivity [None]
  - Liver function test increased [None]
  - Sepsis [None]

NARRATIVE: CASE EVENT DATE: 20190725
